FAERS Safety Report 24615780 (Version 1)
Quarter: 2024Q4

REPORT INFORMATION
  Report Type: Spontaneous
  Country: US (occurrence: US)
  Receive Date: 20241113
  Receipt Date: 20241113
  Transmission Date: 20250114
  Serious: Yes (Other)
  Sender: FRESENIUS MEDICAL CARE
  Company Number: US-FMCRTG-FMC-2411-001409

PATIENT
  Sex: Female
  Weight: 104 kg

DRUGS (1)
  1. DELFLEX [Suspect]
     Active Substance: CALCIUM CHLORIDE\DEXTROSE\MAGNESIUM CHLORIDE\SODIUM CHLORIDE\SODIUM LACTATE
     Indication: End stage renal disease
     Dosage: 4 FILLS 2900ML EACH WITH DWELL TIME OF 2 HOURS 30 MINUTES FOR THREE EXCHANGES, LAST FILL IS 2900ML W
     Route: 033

REACTIONS (1)
  - Peritonitis bacterial [Recovering/Resolving]
